FAERS Safety Report 24318762 (Version 1)
Quarter: 2024Q3

REPORT INFORMATION
  Report Type: Spontaneous
  Country: US (occurrence: US)
  Receive Date: 20240913
  Receipt Date: 20240913
  Transmission Date: 20241017
  Serious: Yes (Disabling)
  Sender: ABBVIE
  Company Number: US-IMMUNOGEN, INC.-US-IMGN-24-00656

PATIENT
  Age: 56 Year
  Sex: Female

DRUGS (1)
  1. ELAHERE [Suspect]
     Active Substance: MIRVETUXIMAB SORAVTANSINE-GYNX
     Indication: Ovarian cancer recurrent
     Dosage: 6 MG/KG?LAST ADMIN DATE: 2024
     Route: 042
     Dates: start: 20240702

REACTIONS (2)
  - Neuropathy peripheral [Not Recovered/Not Resolved]
  - Urinary incontinence [Not Recovered/Not Resolved]

NARRATIVE: CASE EVENT DATE: 20240701
